FAERS Safety Report 20807350 (Version 1)
Quarter: 2022Q2

REPORT INFORMATION
  Report Type: Spontaneous
  Country: US (occurrence: US)
  Receive Date: 20220510
  Receipt Date: 20220510
  Transmission Date: 20220721
  Serious: No
  Sender: FDA-Public Use
  Company Number: US-BRISTOL-MYERS SQUIBB COMPANY-2022-036838

PATIENT
  Age: 82 Year
  Sex: Male

DRUGS (1)
  1. REVLIMID [Suspect]
     Active Substance: LENALIDOMIDE
     Indication: Hypogammaglobulinaemia
     Dosage: TAKE 1 CAPSULE BY?MOUTH EVERY?OTHER DAY FOR 21?DAYS ON, 7 DAYS?OFF
     Route: 048
     Dates: start: 20200128

REACTIONS (2)
  - Product dose omission issue [Unknown]
  - Intentional product use issue [Unknown]
